FAERS Safety Report 25653134 (Version 1)
Quarter: 2025Q3

REPORT INFORMATION
  Report Type: Spontaneous
  Country: US (occurrence: US)
  Receive Date: 20250807
  Receipt Date: 20250807
  Transmission Date: 20251021
  Serious: No
  Sender: ROCHE
  Company Number: US-ROCHE-10000354816

PATIENT
  Sex: Female

DRUGS (1)
  1. XOLAIR [Suspect]
     Active Substance: OMALIZUMAB
     Indication: Urticaria
     Route: 058
     Dates: start: 202506

REACTIONS (7)
  - Hypersensitivity [Unknown]
  - Throat irritation [Unknown]
  - Rash [Unknown]
  - Tremor [Unknown]
  - Migraine [Unknown]
  - Irritability [Unknown]
  - Respiratory tract irritation [Unknown]
